FAERS Safety Report 17707623 (Version 1)
Quarter: 2020Q2

REPORT INFORMATION
  Report Type: Spontaneous
  Country: DE (occurrence: DE)
  Receive Date: 20200424
  Receipt Date: 20200424
  Transmission Date: 20200714
  Serious: Yes (Other)
  Sender: FDA-Public Use
  Company Number: DE-BAYER-2019-136180

PATIENT
  Age: 36 Year
  Sex: Female

DRUGS (1)
  1. MIRENA [Suspect]
     Active Substance: LEVONORGESTREL
     Indication: CONTRACEPTION
     Dosage: 20 MCG/24HR, CONT
     Route: 015
     Dates: start: 20150305, end: 20190716

REACTIONS (4)
  - Device breakage [None]
  - Device dislocation [None]
  - Device material issue [None]
  - Complication of device removal [None]

NARRATIVE: CASE EVENT DATE: 20190716
